FAERS Safety Report 7745990-4 (Version None)
Quarter: 2011Q3

REPORT INFORMATION
  Report Type: 
  Country: None (occurrence: None)
  Receive Date: 20110913
  Receipt Date: 20110630
  Transmission Date: 20111222
  Serious: No
  Sender: FDA-Public Use
  Company Number: CA-ELI_LILLY_AND_COMPANY-CA201107000833

PATIENT
  Sex: Male

DRUGS (3)
  1. IMOVANE [Concomitant]
     Dosage: 7.5 MG, UNK
  2. CYMBALTA [Suspect]
     Dosage: 30 MG, TID
  3. CLONAZEPAM [Concomitant]
     Dosage: 0.05 MG, BID

REACTIONS (1)
  - HEPATIC ENZYME INCREASED [None]
